FAERS Safety Report 15611588 (Version 3)
Quarter: 2018Q4

REPORT INFORMATION
  Report Type: Spontaneous
  Country: US (occurrence: US)
  Receive Date: 20181113
  Receipt Date: 20181224
  Transmission Date: 20190205
  Serious: No
  Sender: FDA-Public Use
  Company Number: US-BIOGEN-2018BI00653150

PATIENT
  Sex: Male

DRUGS (3)
  1. TECFIDERA [Interacting]
     Active Substance: DIMETHYL FUMARATE
     Route: 065
     Dates: start: 201809
  2. TECFIDERA [Suspect]
     Active Substance: DIMETHYL FUMARATE
     Indication: MULTIPLE SCLEROSIS
     Route: 065
     Dates: start: 20180920
  3. TECFIDERA [Interacting]
     Active Substance: DIMETHYL FUMARATE
     Route: 048
     Dates: start: 2018

REACTIONS (5)
  - Influenza [Unknown]
  - Pruritus [Not Recovered/Not Resolved]
  - Epigastric discomfort [Not Recovered/Not Resolved]
  - Erythema [Not Recovered/Not Resolved]
  - Burning sensation [Not Recovered/Not Resolved]

NARRATIVE: CASE EVENT DATE: 2018
